FAERS Safety Report 5342794-7 (Version None)
Quarter: 2007Q2

REPORT INFORMATION
  Report Type: 
  Country: None (occurrence: None)
  Receive Date: 20070601
  Receipt Date: 20070524
  Transmission Date: 20071010
  Serious: Yes (Hospitalization, Other)
  Sender: FDA-Public Use
  Company Number: DE-PFIZER INC-2007042108

PATIENT
  Sex: Female

DRUGS (5)
  1. CELEBREX [Suspect]
     Indication: SPONDYLITIS
     Route: 048
  2. AZULFIDINE [Suspect]
     Indication: SPONDYLITIS
     Route: 048
  3. OMEPRAZOLE [Concomitant]
     Route: 048
  4. METIMAZOL [Concomitant]
     Route: 048
  5. BISOPROLOL FUMARATE [Concomitant]
     Route: 048

REACTIONS (2)
  - DIARRHOEA HAEMORRHAGIC [None]
  - PANCREATITIS [None]
